FAERS Safety Report 22630434 (Version 1)
Quarter: 2023Q2

REPORT INFORMATION
  Report Type: Spontaneous
  Country: SK (occurrence: SK)
  Receive Date: 20230622
  Receipt Date: 20230622
  Transmission Date: 20230722
  Serious: Yes (Other)
  Sender: FDA-Public Use
  Company Number: SK-FreseniusKabi-FK202308748

PATIENT
  Age: 57 Year
  Sex: Female

DRUGS (6)
  1. GEMCITABINE [Suspect]
     Active Substance: GEMCITABINE
     Indication: Pancreatic carcinoma
     Dosage: GEMCITABINE + NAB-PACLITAXE
     Dates: start: 202102
  2. OXALIPLATIN [Suspect]
     Active Substance: OXALIPLATIN
     Indication: Pancreatic carcinoma
     Dosage: 12 CYCLES OF ADJUVANT MFOLFIRINOX
  3. IRINOTECAN [Suspect]
     Active Substance: IRINOTECAN
     Indication: Pancreatic carcinoma
     Dosage: 2 CYCLES OF ADJUVANT MFOLFIRINOX
  4. FLUOROURACIL [Suspect]
     Active Substance: FLUOROURACIL
     Indication: Pancreatic carcinoma
     Dosage: 2 CYCLES OF ADJUVANT MFOLFIRINOX
  5. LEUCOVORIN [Suspect]
     Active Substance: LEUCOVORIN
     Indication: Pancreatic carcinoma
     Dosage: 2 CYCLES OF ADJUVANT MFOLFIRINOX
  6. PACLITAXEL [Suspect]
     Active Substance: PACLITAXEL
     Indication: Pancreatic carcinoma
     Dosage: 6 CYCLES,
     Dates: start: 202102

REACTIONS (2)
  - Neuropathy peripheral [Unknown]
  - Neurotoxicity [Unknown]
